FAERS Safety Report 17890173 (Version 1)
Quarter: 2020Q2

REPORT INFORMATION
  Report Type: Spontaneous
  Country: US (occurrence: US)
  Receive Date: 20200612
  Receipt Date: 20200612
  Transmission Date: 20200714
  Serious: Yes (Other)
  Sender: FDA-Public Use
  Company Number: US-PFIZER INC-2020222602

PATIENT
  Age: 30 Year
  Sex: Male

DRUGS (7)
  1. PENICILLIN G SODIUM. [Concomitant]
     Active Substance: PENICILLIN G SODIUM
     Indication: TETANUS
     Dosage: UNK, EVERY 4 HRS (2 MILLION UNITS)
     Route: 042
  2. DIAZEPAM. [Concomitant]
     Active Substance: DIAZEPAM
     Indication: TETANUS
     Dosage: UNK
     Route: 042
  3. PANCURONIUM BROMIDE. [Suspect]
     Active Substance: PANCURONIUM BROMIDE
     Indication: OPISTHOTONUS
     Dosage: UNK (3-4 MG/HR PANCURONIUM INFUSION)
     Route: 042
  4. PANCURONIUM BROMIDE. [Suspect]
     Active Substance: PANCURONIUM BROMIDE
     Indication: TETANUS
  5. DIAZEPAM. [Concomitant]
     Active Substance: DIAZEPAM
     Indication: SEDATION
  6. TETANUS INMUNOGLOBULIN [Concomitant]
     Indication: TETANUS
     Dosage: UNK (3000 UNITS)
     Route: 030
  7. MORPHINE SULFATE. [Concomitant]
     Active Substance: MORPHINE SULFATE
     Indication: SEDATION
     Dosage: UNK

REACTIONS (3)
  - Tachycardia [Recovered/Resolved]
  - Impaired gastric emptying [Recovered/Resolved]
  - Hypertension [Recovered/Resolved]
